FAERS Safety Report 5540890-2 (Version None)
Quarter: 2007Q4

REPORT INFORMATION
  Report Type: 
  Country: None (occurrence: None)
  Receive Date: 20071129
  Receipt Date: 20070627
  Transmission Date: 20080405
  Serious: Yes (Other)
  Sender: FDA-Public Use
  Company Number: US200706005120

PATIENT
  Age: 52 Year
  Sex: Female

DRUGS (3)
  1. ZYPREXA [Suspect]
     Dosage: 10 MG, DAILY (1/D), ORAL
     Route: 048
     Dates: start: 20020101
  2. EFFEXOR [Concomitant]
  3. LAMICTAL [Concomitant]

REACTIONS (1)
  - WEIGHT INCREASED [None]
